FAERS Safety Report 4438880-6 (Version None)
Quarter: 2004Q3

REPORT INFORMATION
  Report Type: 
  Country: None (occurrence: None)
  Receive Date: 20040830
  Receipt Date: 20040818
  Transmission Date: 20050211
  Serious: Yes (Life-Threatening)
  Sender: FDA-Public Use
  Company Number: PERC20040045

PATIENT
  Age: 50 Year
  Sex: Male

DRUGS (4)
  1. PERCOCET [Suspect]
     Indication: PAIN
     Dosage: 2 TABS Q6H PO
     Route: 048
     Dates: start: 20040317
  2. DURAGESIC [Suspect]
     Indication: PAIN
     Dates: start: 20040405
  3. CARISOPRODOL [Concomitant]
  4. TEMAZEPAM [Concomitant]

REACTIONS (3)
  - EMOTIONAL DISORDER [None]
  - LOSS OF CONSCIOUSNESS [None]
  - MEDICATION ERROR [None]
